FAERS Safety Report 4313629-6 (Version None)
Quarter: 2004Q1

REPORT INFORMATION
  Report Type: 
  Country: None (occurrence: None)
  Receive Date: 20040308
  Receipt Date: 20040225
  Transmission Date: 20041129
  Serious: Yes (Other)
  Sender: FDA-Public Use
  Company Number: JP-BRISTOL-MYERS SQUIBB COMPANY-12517322

PATIENT
  Age: 16 Year
  Sex: Male

DRUGS (5)
  1. PARAPLATIN [Suspect]
     Indication: PINEAL GERMINOMA
     Route: 042
     Dates: start: 19980101
  2. ETOPOSIDE [Suspect]
     Indication: PINEAL GERMINOMA
     Dosage: 3 CYCLES IN 1998
     Dates: start: 20000101
  3. CISPLATIN [Suspect]
     Indication: PINEAL GERMINOMA
     Dates: start: 20000101
  4. IFOSFAMIDE [Suspect]
     Indication: PINEAL GERMINOMA
     Dates: start: 20000101
  5. RADIOTHERAPY [Suspect]
     Indication: PINEAL GERMINOMA
     Dates: start: 20000101

REACTIONS (3)
  - CHRONIC MYELOID LEUKAEMIA [None]
  - LEUKAEMIA [None]
  - METASTASES TO SPINE [None]
